FAERS Safety Report 16782674 (Version 3)
Quarter: 2019Q4

REPORT INFORMATION
  Report Type: Spontaneous
  Country: US (occurrence: US)
  Receive Date: 20190906
  Receipt Date: 20191219
  Transmission Date: 20200122
  Serious: Yes (Hospitalization)
  Sender: FDA-Public Use
  Company Number: US-SA-2019SA244427

PATIENT
  Age: 45 Year
  Sex: Female

DRUGS (2)
  1. AMPYRA [Concomitant]
     Active Substance: DALFAMPRIDINE
  2. AUBAGIO [Suspect]
     Active Substance: TERIFLUNOMIDE
     Indication: MULTIPLE SCLEROSIS
     Dosage: 14 MG, QD
     Route: 048
     Dates: start: 201903

REACTIONS (5)
  - Depression [Unknown]
  - Stress [Unknown]
  - Depressed mood [Unknown]
  - Alopecia [Recovering/Resolving]
  - Decreased interest [Unknown]

NARRATIVE: CASE EVENT DATE: 2019
